FAERS Safety Report 10077451 (Version 2)
Quarter: 2014Q2

REPORT INFORMATION
  Report Type: Spontaneous
  Country: US (occurrence: US)
  Receive Date: 20140414
  Receipt Date: 20140414
  Transmission Date: 20141212
  Serious: No
  Sender: FDA-Public Use
  Company Number: US-BANPHARM-20131537

PATIENT
  Sex: Female
  Weight: 72.57 kg

DRUGS (3)
  1. ALEVE LIQUID GELS 220 MG [Suspect]
     Indication: ARTHRITIS
     Dosage: 2 DF, ONCE DAILY,
     Route: 048
     Dates: start: 2008
  2. BAYER 81 MG ENTERIC ASA [Concomitant]
     Dosage: 1 DF, TID,
     Route: 048
  3. NEXIUM [Concomitant]

REACTIONS (4)
  - Somnolence [Recovered/Resolved]
  - Feeling abnormal [Unknown]
  - Abdominal discomfort [Unknown]
  - Incorrect drug administration duration [Unknown]
